FAERS Safety Report 11315351 (Version 1)
Quarter: 2015Q3

REPORT INFORMATION
  Report Type: Spontaneous
  Country: US (occurrence: US)
  Receive Date: 20150727
  Receipt Date: 20150727
  Transmission Date: 20151125
  Serious: No
  Sender: FDA-Public Use
  Company Number: US-009507513-1507USA010415

PATIENT
  Age: 55 Year
  Sex: Female

DRUGS (1)
  1. LOSARTAN POTASSIUM TABLETS [Suspect]
     Active Substance: LOSARTAN POTASSIUM
     Indication: HYPERTENSION
     Dosage: UNK, QD
     Route: 048
     Dates: start: 201203, end: 20150703

REACTIONS (5)
  - Visual impairment [Recovering/Resolving]
  - Vision blurred [Recovering/Resolving]
  - Photopsia [Recovering/Resolving]
  - Metamorphopsia [Recovering/Resolving]
  - Visual acuity reduced [Recovering/Resolving]

NARRATIVE: CASE EVENT DATE: 201208
